FAERS Safety Report 7612332-4 (Version None)
Quarter: 2011Q3

REPORT INFORMATION
  Report Type: 
  Country: None (occurrence: None)
  Receive Date: 20110715
  Receipt Date: 20110706
  Transmission Date: 20111222
  Serious: Yes (Hospitalization)
  Sender: FDA-Public Use
  Company Number: BR-ASTRAZENECA-2011SE40749

PATIENT
  Age: 77 Year
  Sex: Male
  Weight: 77 kg

DRUGS (6)
  1. PROLOPA [Concomitant]
     Indication: PARKINSON'S DISEASE
     Route: 048
     Dates: start: 19990101
  2. PROPRANOLOL [Suspect]
     Indication: PARKINSON'S DISEASE
     Route: 048
     Dates: start: 20010101
  3. RETEMIC [Concomitant]
     Indication: NEUROGENIC BLADDER
     Route: 048
     Dates: start: 20070101
  4. MANTIDAN [Concomitant]
     Indication: PARKINSON'S DISEASE
     Dates: start: 19990101
  5. AVODART [Concomitant]
     Indication: BENIGN PROSTATIC HYPERPLASIA
     Route: 048
  6. SEROQUEL XR [Suspect]
     Indication: CONFUSIONAL STATE
     Route: 048
     Dates: start: 20110401

REACTIONS (4)
  - SEPSIS [None]
  - CONFUSIONAL STATE [None]
  - OFF LABEL USE [None]
  - URINARY TRACT INFECTION [None]
